FAERS Safety Report 23904246 (Version 1)
Quarter: 2024Q2

REPORT INFORMATION
  Report Type: Spontaneous
  Country: US (occurrence: US)
  Receive Date: 20240527
  Receipt Date: 20240527
  Transmission Date: 20240716
  Serious: No
  Sender: FDA-Public Use
  Company Number: US-Nexus Pharma-000257

PATIENT

DRUGS (1)
  1. EMERPHED [Suspect]
     Active Substance: EPHEDRINE SULFATE
     Indication: Product used for unknown indication
     Dosage: STRENGTH: 50MG/10ML, PRE-FILLED SYRINGE

REACTIONS (1)
  - Therapeutic product effect incomplete [Unknown]
